FAERS Safety Report 4354581-7 (Version None)
Quarter: 2004Q2

REPORT INFORMATION
  Report Type: 
  Country: None (occurrence: None)
  Receive Date: 20040506
  Receipt Date: 20040506
  Transmission Date: 20050107
  Serious: Yes (Life-Threatening, Hospitalization)
  Sender: FDA-Public Use
  Company Number: None

PATIENT
  Sex: Female
  Weight: 70.3075 kg

DRUGS (2)
  1. LEVAQUIN [Suspect]
     Indication: SINUSITIS
     Dosage: ONE TABLET ONCE A DAY ORAL
     Route: 048
     Dates: start: 20040313, end: 20040322
  2. LEVAQUIN [Suspect]
     Indication: SINUSITIS
     Dosage: ONE TABLET ONCE A DAY ORAL
     Route: 048
     Dates: start: 20040409, end: 20040409

REACTIONS (10)
  - ANTINUCLEAR ANTIBODY POSITIVE [None]
  - ARTHRALGIA [None]
  - BACTERIAL INFECTION [None]
  - DYSPNOEA [None]
  - NAUSEA [None]
  - RED BLOOD CELL SEDIMENTATION RATE INCREASED [None]
  - RHEUMATOID FACTOR POSITIVE [None]
  - SINUSITIS [None]
  - VOMITING [None]
  - WHEEZING [None]
